FAERS Safety Report 14243712 (Version 3)
Quarter: 2018Q1

REPORT INFORMATION
  Report Type: Spontaneous
  Country: US (occurrence: US)
  Receive Date: 20171201
  Receipt Date: 20180315
  Transmission Date: 20180508
  Serious: Yes (Other)
  Sender: FDA-Public Use
  Company Number: US-PFIZER INC-2017511912

PATIENT
  Age: 50 Year
  Sex: Male
  Weight: 82 kg

DRUGS (11)
  1. VITAMIN D2 [Concomitant]
     Active Substance: ERGOCALCIFEROL
     Dosage: 50000 IU, WEEKLY
     Route: 048
     Dates: start: 20151111
  2. METFORMIN [Concomitant]
     Active Substance: METFORMIN HYDROCHLORIDE
     Dosage: 1000 MG, 1X/DAY (EVERY MORNING WITH FOOD)
     Dates: start: 20100513
  3. TRIAMTERENE AND HYDROCHLOROTHIAZIDE [Concomitant]
     Active Substance: HYDROCHLOROTHIAZIDE\TRIAMTERENE
     Indication: OEDEMA
     Dosage: UNK UNK, AS NEEDED [HYDROCHLOROTHIAZIDE: 37.5 MG]/[TRIAMTERENE: 25 MG]
     Route: 048
     Dates: start: 20170123
  4. LYRICA [Suspect]
     Active Substance: PREGABALIN
     Indication: FIBROMYALGIA
  5. PRINIVIL [Concomitant]
     Active Substance: LISINOPRIL
     Dosage: 10 MG, DAILY
     Dates: start: 20100513
  6. LYRICA [Suspect]
     Active Substance: PREGABALIN
     Indication: PAIN
     Dosage: 150 MG, 1X/DAY
     Route: 048
     Dates: end: 201711
  7. PRAVACHOL [Concomitant]
     Active Substance: PRAVASTATIN SODIUM
     Dosage: 20 MG, DAILY
     Route: 048
     Dates: start: 20161106
  8. RESTORIL [Concomitant]
     Active Substance: TEMAZEPAM
     Indication: SLEEP DISORDER
     Dosage: 15 MG, AS NEEDED ( NIGHTLY AS NEEDED FOR SLEEP)
     Route: 048
     Dates: start: 20170504
  9. LYRICA [Suspect]
     Active Substance: PREGABALIN
     Indication: BURNING SENSATION
  10. ZESTRIL [Concomitant]
     Active Substance: LISINOPRIL
     Dosage: 10 MG, DAILY
     Dates: start: 20150513
  11. ASPIRIN. [Concomitant]
     Active Substance: ASPIRIN
     Dosage: 81 MG, DAILY
     Route: 048
     Dates: start: 20100513

REACTIONS (9)
  - Asthenia [Not Recovered/Not Resolved]
  - Burning sensation [Unknown]
  - Condition aggravated [Unknown]
  - Staphylococcal infection [Unknown]
  - Pyrexia [Unknown]
  - Pain in extremity [Unknown]
  - Arthropod bite [Unknown]
  - Scar [Unknown]
  - Malaise [Unknown]

NARRATIVE: CASE EVENT DATE: 2014
